FAERS Safety Report 5525069-2 (Version None)
Quarter: 2007Q4

REPORT INFORMATION
  Report Type: 
  Country: None (occurrence: None)
  Receive Date: 20071119
  Receipt Date: 20071105
  Transmission Date: 20080405
  Serious: Yes (Other)
  Sender: FDA-Public Use
  Company Number: S07-USA-05818-01

PATIENT
  Age: 68 Year
  Sex: Female

DRUGS (12)
  1. CELEXA [Suspect]
     Indication: DEPRESSION
     Dates: end: 20061207
  2. BONIVA [Suspect]
     Indication: OSTEOPOROSIS
     Dosage: 150 MG QD PO
     Route: 048
     Dates: start: 20051027, end: 20070416
  3. PAXIL [Suspect]
  4. ZOCOR [Concomitant]
  5. FLONASE [Concomitant]
  6. HYDROCHLOROTHIAZIDE [Concomitant]
  7. ELAVIL [Concomitant]
  8. NITROFURANTOIN [Concomitant]
  9. DEPAKOTE [Concomitant]
  10. NORVASC [Concomitant]
  11. AMBIEN [Concomitant]
  12. NIACIN [Concomitant]

REACTIONS (12)
  - CONDITION AGGRAVATED [None]
  - DEPRESSION [None]
  - DRUG INTERACTION [None]
  - ELECTROCARDIOGRAM ST SEGMENT DEPRESSION [None]
  - HEADACHE [None]
  - INSOMNIA [None]
  - INTRACRANIAL ANEURYSM [None]
  - OSTEOPENIA [None]
  - PHOTOPHOBIA [None]
  - REFUSAL OF TREATMENT BY PATIENT [None]
  - RIGHT ATRIAL DILATATION [None]
  - TACHYCARDIA [None]
